FAERS Safety Report 5804068-7 (Version None)
Quarter: 2008Q3

REPORT INFORMATION
  Report Type: 
  Country: None (occurrence: None)
  Receive Date: 20080707
  Receipt Date: 20080707
  Transmission Date: 20090109
  Serious: Yes (Disabling)
  Sender: FDA-Public Use
  Company Number: None

PATIENT
  Age: 54 Year
  Sex: Female

DRUGS (5)
  1. ZOMETA [Suspect]
     Indication: BREAST CANCER
     Dosage: 4MG MONTHLY  IV
     Route: 042
     Dates: start: 20010701, end: 20060301
  2. CYMBALTA [Concomitant]
  3. SARACEUL [Concomitant]
  4. WELLBUTRIN [Concomitant]
  5. HYDROCODONE BITARTRATE [Concomitant]

REACTIONS (2)
  - BONE DISORDER [None]
  - PAIN IN JAW [None]
